FAERS Safety Report 5446209-X (Version None)
Quarter: 2007Q3

REPORT INFORMATION
  Report Type: 
  Country: None (occurrence: None)
  Receive Date: 20070731
  Receipt Date: 20061205
  Transmission Date: 20080115
  Serious: Yes (Other)
  Sender: FDA-Public Use
  Company Number: US-2006-036911

PATIENT

DRUGS (1)
  1. MAGNEVIST INJECTION (GADOPENATETATE DIMEGLUMINE) INJECTION [Suspect]
     Dosage: 10 ML, 1 DOSE,

REACTIONS (2)
  - DYSPNOEA [None]
  - PHARYNGEAL OEDEMA [None]
